FAERS Safety Report 16974498 (Version 1)
Quarter: 2019Q4

REPORT INFORMATION
  Report Type: Spontaneous
  Country: US (occurrence: US)
  Receive Date: 20190913
  Receipt Date: 20190913
  Transmission Date: 20200122
  Serious: No
  Sender: FDA-Public Use
  Company Number: None

PATIENT
  Age: 47 Year
  Sex: Female

DRUGS (1)
  1. ETOPOSIDE CAP 50MG [Suspect]
     Active Substance: ETOPOSIDE
     Indication: NEOPLASM MALIGNANT
     Route: 048
     Dates: start: 201908, end: 20190912

REACTIONS (6)
  - Feeding disorder [None]
  - Stomatitis [None]
  - Candida infection [None]
  - Alopecia [None]
  - Lip blister [None]
  - Fatigue [None]

NARRATIVE: CASE EVENT DATE: 20190913
